FAERS Safety Report 5938222-0 (Version None)
Quarter: 2008Q4

REPORT INFORMATION
  Report Type: 
  Country: None (occurrence: None)
  Receive Date: 20081031
  Receipt Date: 20081020
  Transmission Date: 20090506
  Serious: Yes (Other)
  Sender: FDA-Public Use
  Company Number: US-PFIZER INC-2008089360

PATIENT
  Sex: Female
  Weight: 161 kg

DRUGS (5)
  1. GLIBENCLAMIDE TABLET [Suspect]
     Indication: GESTATIONAL DIABETES
     Route: 048
     Dates: start: 20080821
  2. METHYLDOPA [Concomitant]
     Indication: HYPERTENSION
  3. CIMETIDINE [Concomitant]
     Indication: DYSPEPSIA
  4. CLARITIN [Concomitant]
     Indication: HYPERSENSITIVITY
  5. VITAMIN TAB [Concomitant]

REACTIONS (2)
  - BLOOD GLUCOSE DECREASED [None]
  - STILLBIRTH [None]
